FAERS Safety Report 17084816 (Version 1)
Quarter: 2019Q4

REPORT INFORMATION
  Report Type: Spontaneous
  Country: US (occurrence: US)
  Receive Date: 20191127
  Receipt Date: 20191127
  Transmission Date: 20200122
  Serious: No
  Sender: FDA-Public Use
  Company Number: US-TEVA-2019-US-1144585

PATIENT
  Age: 9 Year
  Sex: Male

DRUGS (3)
  1. FLUTICASONE. [Suspect]
     Active Substance: FLUTICASONE
     Indication: STATUS ASTHMATICUS
     Dosage: 440 MICROGRAM DAILY;
     Route: 055
  2. FLUTICASONE. [Suspect]
     Active Substance: FLUTICASONE
     Indication: STATUS ASTHMATICUS
     Dosage: 176 MICROGRAM DAILY; INITIAL DOSE
     Route: 055
  3. ALBUTEROL. [Concomitant]
     Active Substance: ALBUTEROL
     Indication: STATUS ASTHMATICUS
     Route: 065

REACTIONS (1)
  - Tic [Recovered/Resolved]
